FAERS Safety Report 10549339 (Version 2)
Quarter: 2014Q4

REPORT INFORMATION
  Report Type: Spontaneous
  Country: US (occurrence: US)
  Receive Date: 20141028
  Receipt Date: 20141124
  Transmission Date: 20150529
  Serious: Yes (Other)
  Sender: FDA-Public Use
  Company Number: US-009507513-1410USA011348

PATIENT
  Sex: Female

DRUGS (1)
  1. ASMANEX [Suspect]
     Active Substance: MOMETASONE FUROATE
     Indication: ASTHMA
     Dosage: 1 PUFF A DAY
     Route: 055

REACTIONS (7)
  - Wrong technique in drug usage process [Unknown]
  - Visual acuity reduced [Unknown]
  - Underdose [Unknown]
  - Shoulder arthroplasty [Unknown]
  - Tendonitis [Unknown]
  - Drug dose omission [Unknown]
  - Arthralgia [Unknown]
